FAERS Safety Report 22246150 (Version 1)
Quarter: 2023Q2

REPORT INFORMATION
  Report Type: Spontaneous
  Country: US (occurrence: None)
  Receive Date: 20230423
  Receipt Date: 20230423
  Transmission Date: 20230722
  Serious: Yes (Life-Threatening, Other)
  Sender: FDA-Public Use
  Company Number: None

PATIENT
  Age: 23 Year
  Sex: Female
  Weight: 75.75 kg

DRUGS (6)
  1. PARAGARD T 380A [Suspect]
     Active Substance: COPPER
  2. ALBUTEROL SULFATE [Concomitant]
     Active Substance: ALBUTEROL SULFATE
  3. VITAMIN C [Concomitant]
     Active Substance: ASCORBIC ACID
  4. ZINC [Concomitant]
     Active Substance: ZINC
  5. CETIRIZINE HYDROCHLORIDE [Concomitant]
     Active Substance: CETIRIZINE HYDROCHLORIDE
  6. FLONASE [Concomitant]
     Active Substance: FLUTICASONE PROPIONATE

REACTIONS (7)
  - Amnesia [None]
  - Brain fog [None]
  - Attention deficit hyperactivity disorder [None]
  - Anxiety [None]
  - Mood swings [None]
  - Intrusive thoughts [None]
  - Suicidal ideation [None]

NARRATIVE: CASE EVENT DATE: 20230405
